FAERS Safety Report 6502819-X (Version None)
Quarter: 2009Q4

REPORT INFORMATION
  Report Type: 
  Country: None (occurrence: None)
  Receive Date: 20091217
  Receipt Date: 20091116
  Transmission Date: 20100525
  Serious: No
  Sender: FDA-Public Use
  Company Number: US-BAYER-200911407NA

PATIENT
  Age: 60 Year
  Sex: Female

DRUGS (2)
  1. CLIMARA [Suspect]
     Indication: OSTEOPOROSIS PROPHYLAXIS
     Dosage: CONTINUOUS
     Route: 062
     Dates: start: 19980101
  2. CLIMARA [Suspect]
     Dosage: CONTINUOUS DELIVERY FOR ONCE WEEKLY APPLICATION
     Route: 062
     Dates: start: 20090101

REACTIONS (6)
  - BLOOD PRESSURE INCREASED [None]
  - BONE DENSITY DECREASED [None]
  - FATIGUE [None]
  - HEART RATE INCREASED [None]
  - PERSONALITY CHANGE [None]
  - PRODUCT ADHESION ISSUE [None]
